FAERS Safety Report 8776835 (Version 2)
Quarter: 2012Q4

REPORT INFORMATION
  Report Type: 
  Country: US (occurrence: US)
  Receive Date: 20120911
  Receipt Date: 20121222
  Transmission Date: 20130627
  Serious: No
  Sender: FDA-Public Use
  Company Number: US-ASTRAZENECA-2012SE32933

PATIENT
  Age: 53 Year
  Sex: Female

DRUGS (8)
  1. SEROQUEL XR [Suspect]
     Indication: DEPRESSION
     Route: 048
  2. SEROQUEL XR [Suspect]
     Indication: INSOMNIA
     Route: 048
  3. SEROQUEL XR [Suspect]
     Indication: BIPOLAR DISORDER
     Route: 048
  4. SEROQUEL XR [Suspect]
     Indication: SLEEP DISORDER
     Route: 048
  5. SEROQUEL XR [Suspect]
     Indication: DEPRESSION
     Route: 048
  6. SEROQUEL XR [Suspect]
     Indication: INSOMNIA
     Route: 048
  7. SEROQUEL XR [Suspect]
     Indication: BIPOLAR DISORDER
     Route: 048
  8. SEROQUEL XR [Suspect]
     Indication: SLEEP DISORDER
     Route: 048

REACTIONS (4)
  - Visual acuity reduced [Unknown]
  - Visual impairment [Unknown]
  - Weight increased [Unknown]
  - Drug ineffective [Unknown]
